FAERS Safety Report 9858294 (Version 1)
Quarter: 2014Q1

REPORT INFORMATION
  Report Type: Spontaneous
  Country: US (occurrence: None)
  Receive Date: 20140130
  Receipt Date: 20140130
  Transmission Date: 20141002
  Serious: Yes (Life-Threatening, Hospitalization)
  Sender: FDA-Public Use
  Company Number: None

PATIENT
  Age: 72 Year
  Sex: Female
  Weight: 82.56 kg

DRUGS (1)
  1. RITUXAN [Suspect]
     Indication: NON-HODGKIN^S LYMPHOMA
     Dates: start: 20131105, end: 20131105

REACTIONS (11)
  - Dyspnoea [None]
  - Feeling hot [None]
  - Loss of consciousness [None]
  - Shock [None]
  - Vertigo [None]
  - Gastric disorder [None]
  - Eye haemorrhage [None]
  - White blood cell count decreased [None]
  - Mental impairment [None]
  - Speech disorder [None]
  - Dysgraphia [None]
